FAERS Safety Report 19797544 (Version 2)
Quarter: 2021Q3

REPORT INFORMATION
  Report Type: Spontaneous
  Country: US (occurrence: US)
  Receive Date: 20210907
  Receipt Date: 20210913
  Transmission Date: 20211014
  Serious: Yes (Hospitalization, Other)
  Sender: FDA-Public Use
  Company Number: US-PFIZER INC-202101134877

PATIENT
  Age: 70 Year
  Sex: Female

DRUGS (2)
  1. CYTARABINE. [Suspect]
     Active Substance: CYTARABINE
     Indication: MARGINAL ZONE LYMPHOMA RECURRENT
     Dosage: UNK
     Route: 037
  2. METHOTREXATE SODIUM. [Suspect]
     Active Substance: METHOTREXATE SODIUM
     Indication: MARGINAL ZONE LYMPHOMA RECURRENT
     Dosage: HIGH DOSE
     Route: 042

REACTIONS (3)
  - Meningitis chemical [Recovering/Resolving]
  - Neurotoxicity [Recovering/Resolving]
  - Encephalopathy [Recovering/Resolving]
